FAERS Safety Report 7691346-2 (Version None)
Quarter: 2011Q3

REPORT INFORMATION
  Report Type: 
  Country: None (occurrence: None)
  Receive Date: 20110818
  Receipt Date: 20110805
  Transmission Date: 20111222
  Serious: Yes (Other)
  Sender: FDA-Public Use
  Company Number: PHEH2011US00877

PATIENT
  Sex: Female

DRUGS (21)
  1. SULFONYL UREA DERIVATIVES [Concomitant]
  2. REPAGLINIDE [Concomitant]
  3. TASIGNA [Suspect]
     Dosage: 300 MG, AM
     Route: 048
     Dates: start: 20110519
  4. MULTI-VITAMINS [Concomitant]
  5. POTASSIUM CHLORIDE [Concomitant]
  6. HYDROCHLOROTHIAZIDE [Concomitant]
  7. AVANDAMET [Concomitant]
  8. ALPHA GLUCOSIDASE INHIBITORS [Concomitant]
  9. TASIGNA [Suspect]
     Dosage: 150 MG, BID
     Route: 048
  10. VIT B-COMPLEX [Concomitant]
     Dosage: 100 MG, UNK
  11. ALDACTONE [Concomitant]
     Dosage: UNK
  12. INSULIN [Concomitant]
  13. TASIGNA [Suspect]
     Dosage: 150 MG, PM
     Route: 048
     Dates: start: 20110519
  14. TROGLITAZONE [Concomitant]
  15. TASIGNA [Suspect]
     Dosage: 300 MG, QD
     Route: 048
     Dates: start: 20110510
  16. FOLIC ACID [Concomitant]
  17. ESTER-C [Concomitant]
  18. CALCIUM CARBONATE [Concomitant]
  19. TASIGNA [Suspect]
     Indication: CHRONIC MYELOID LEUKAEMIA
     Dosage: 300 MG, BID
     Route: 048
     Dates: start: 20110415
  20. ADVAIR DISKUS 100/50 [Concomitant]
  21. METFORMIN [Concomitant]

REACTIONS (3)
  - HEPATITIS [None]
  - TRANSAMINASES INCREASED [None]
  - NAUSEA [None]
